FAERS Safety Report 6547190-2 (Version None)
Quarter: 2009Q4

REPORT INFORMATION
  Report Type: 
  Country: None (occurrence: None)
  Receive Date: 20091215
  Receipt Date: 20090529
  Transmission Date: 20100525
  Serious: Yes (Hospitalization)
  Sender: FDA-Public Use
  Company Number: FEI2009-1152

PATIENT
  Sex: Female
  Weight: 52.1637 kg

DRUGS (3)
  1. INTRAUTERINE COPPER CONTRACEPTIVE [Suspect]
     Indication: CONTRACEPTION
     Dosage: INTRA-UTERINE
     Route: 015
     Dates: start: 20060101, end: 20090322
  2. TEGRETOL (CARBAMAZINE) [Concomitant]
  3. EFFEXOR [Concomitant]

REACTIONS (6)
  - ABDOMINAL PAIN [None]
  - DEHYDRATION [None]
  - ECTOPIC PREGNANCY [None]
  - METRORRHAGIA [None]
  - NAUSEA [None]
  - VAGINAL HAEMORRHAGE [None]
